FAERS Safety Report 20961134 (Version 1)
Quarter: 2022Q2

REPORT INFORMATION
  Report Type: Spontaneous
  Country: US (occurrence: US)
  Receive Date: 20220615
  Receipt Date: 20220615
  Transmission Date: 20220721
  Serious: No
  Sender: FDA-Public Use
  Company Number: US-UNITED THERAPEUTICS-UNT-2022-012576

PATIENT
  Sex: Female

DRUGS (3)
  1. REMODULIN [Suspect]
     Active Substance: TREPROSTINIL
     Indication: Pulmonary arterial hypertension
     Dosage: UNK, CONTINUING
     Route: 058
     Dates: start: 20220308
  2. REMODULIN [Suspect]
     Active Substance: TREPROSTINIL
     Dosage: 0.02120 ?G/KG, CONTINUING
     Route: 058
  3. AMBRISENTAN [Concomitant]
     Active Substance: AMBRISENTAN
     Indication: Pulmonary hypertension
     Dosage: 10 MG, QD
     Route: 065
     Dates: start: 201602

REACTIONS (3)
  - Infusion site pain [Unknown]
  - Infusion site swelling [Unknown]
  - Unintentional medical device removal [Recovered/Resolved]
